FAERS Safety Report 10087800 (Version 2)
Quarter: 2014Q2

REPORT INFORMATION
  Report Type: Spontaneous
  Country: US (occurrence: US)
  Receive Date: 20140418
  Receipt Date: 20140418
  Transmission Date: 20141212
  Serious: No
  Sender: FDA-Public Use
  Company Number: US-PURDUE-USA-2013-0109913

PATIENT
  Sex: Female

DRUGS (3)
  1. OXYCONTIN (NDA 22-272) [Suspect]
     Indication: SPINAL OSTEOARTHRITIS
     Dosage: 60 MG, TID
     Route: 048
     Dates: start: 20131231
  2. OXYCONTIN (NDA 22-272) [Suspect]
     Indication: PAIN
  3. ROXICODONE [Concomitant]
     Indication: BREAKTHROUGH PAIN
     Dosage: 30 MG, PRN BTP
     Route: 048

REACTIONS (6)
  - Drug withdrawal syndrome [Unknown]
  - Pain [Unknown]
  - Feeling of body temperature change [Unknown]
  - Nausea [Unknown]
  - Vomiting [Unknown]
  - Diarrhoea [Unknown]
